FAERS Safety Report 18850123 (Version 2)
Quarter: 2021Q1

REPORT INFORMATION
  Report Type: Spontaneous
  Country: US (occurrence: US)
  Receive Date: 20210205
  Receipt Date: 20210309
  Transmission Date: 20210420
  Serious: No
  Sender: FDA-Public Use
  Company Number: US-SUNOVION-2021SUN000221

PATIENT
  Sex: Female

DRUGS (3)
  1. ENTACAPONE. [Concomitant]
     Active Substance: ENTACAPONE
  2. GOCOVRI [Concomitant]
     Active Substance: AMANTADINE
  3. KYNMOBI [Suspect]
     Active Substance: APOMORPHINE HYDROCHLORIDE
     Dosage: UNK
     Route: 060
     Dates: start: 20201102

REACTIONS (4)
  - Nausea [Not Recovered/Not Resolved]
  - Stress [Unknown]
  - Pain [Unknown]
  - On and off phenomenon [Unknown]
